FAERS Safety Report 14288700 (Version 3)
Quarter: 2018Q1

REPORT INFORMATION
  Report Type: Report from Study
  Country: US (occurrence: US)
  Receive Date: 20171215
  Receipt Date: 20180213
  Transmission Date: 20180509
  Serious: Yes (Other)
  Sender: FDA-Public Use
  Company Number: US-ALEXION PHARMACEUTICALS INC.-A201714043

PATIENT
  Age: 33 Year
  Sex: Female

DRUGS (1)
  1. STRENSIQ [Suspect]
     Active Substance: ASFOTASE ALFA
     Indication: PHOSPHORUS METABOLISM DISORDER
     Dosage: 1 MG/L, SIX TIMES PER WEEK
     Route: 065
     Dates: start: 20170311

REACTIONS (2)
  - Adverse event [Unknown]
  - Mast cell activation syndrome [Unknown]

NARRATIVE: CASE EVENT DATE: 20171201
